FAERS Safety Report 6160620-3 (Version None)
Quarter: 2009Q2

REPORT INFORMATION
  Report Type: 
  Country: None (occurrence: None)
  Receive Date: 20090420
  Receipt Date: 20090413
  Transmission Date: 20091009
  Serious: Yes (Other)
  Sender: FDA-Public Use
  Company Number: US-ASTRAZENECA-2009UW00206

PATIENT
  Age: 58 Year
  Sex: Male
  Weight: 140.6 kg

DRUGS (3)
  1. SEROQUEL [Suspect]
     Indication: DEPRESSION
     Route: 048
     Dates: start: 20040101, end: 20050101
  2. GEODON [Concomitant]
     Dates: start: 20040101
  3. CLONAZEPAM [Concomitant]
     Dates: start: 20000101

REACTIONS (7)
  - DEPRESSION [None]
  - DIABETES MELLITUS [None]
  - DIABETIC KETOACIDOSIS [None]
  - HYPERTENSION [None]
  - JOINT INJURY [None]
  - LEG AMPUTATION [None]
  - WEIGHT INCREASED [None]
